FAERS Safety Report 10152109 (Version 1)
Quarter: 2014Q2

REPORT INFORMATION
  Report Type: Spontaneous
  Country: BE (occurrence: None)
  Receive Date: 20140501
  Receipt Date: 20140501
  Transmission Date: 20141212
  Serious: Yes (Life-Threatening, Hospitalization)
  Sender: FDA-Public Use
  Company Number: NL01PV14.35788

PATIENT
  Age: 09 Year
  Sex: Male
  Weight: 27 kg

DRUGS (3)
  1. PROPOFOL [Suspect]
     Indication: GENERAL ANAESTHESIA
     Dosage: CONTINUOUS INFUSION; UNKNOWN
     Route: 042
  2. SUFENTANIL [Suspect]
     Indication: GENERAL ANAESTHESIA
  3. SEVOFLURANE [Suspect]
     Indication: ANAESTHESIA
     Dosage: MASK VENTILATION; RESPIRATORY

REACTIONS (2)
  - Hyperthermia malignant [None]
  - Rhabdomyolysis [None]
